FAERS Safety Report 12186140 (Version 3)
Quarter: 2016Q4

REPORT INFORMATION
  Report Type: Report from Study
  Country: US (occurrence: US)
  Receive Date: 20160317
  Receipt Date: 20161202
  Transmission Date: 20170207
  Serious: Yes (Hospitalization, Other)
  Sender: FDA-Public Use
  Company Number: US-AMGEN-USASL2016032757

PATIENT
  Age: 83 Year
  Sex: Female

DRUGS (1)
  1. PROLIA [Suspect]
     Active Substance: DENOSUMAB
     Indication: BONE DISORDER
     Dosage: UNK
     Route: 065
     Dates: start: 2014

REACTIONS (4)
  - Osteoarthritis [Unknown]
  - Gait disturbance [Unknown]
  - Kidney infection [Not Recovered/Not Resolved]
  - Spinal deformity [Unknown]

NARRATIVE: CASE EVENT DATE: 201603
